FAERS Safety Report 24008427 (Version 1)
Quarter: 2024Q2

REPORT INFORMATION
  Report Type: Spontaneous
  Country: US (occurrence: US)
  Receive Date: 20240625
  Receipt Date: 20240625
  Transmission Date: 20240715
  Serious: No
  Sender: FDA-Public Use
  Company Number: US-ELI_LILLY_AND_COMPANY-US202406016040

PATIENT
  Sex: Male

DRUGS (3)
  1. HUMATROPE [Suspect]
     Active Substance: SOMATROPIN
     Indication: Product used for unknown indication
     Dosage: 3 INTERNATIONAL UNIT, DAILY
     Route: 065
  2. HUMATROPE [Suspect]
     Active Substance: SOMATROPIN
     Dosage: 3 INTERNATIONAL UNIT, DAILY
     Route: 065
  3. HUMATROPE [Suspect]
     Active Substance: SOMATROPIN
     Dosage: 3 INTERNATIONAL UNIT, DAILY
     Route: 065

REACTIONS (2)
  - Incorrect dose administered [Unknown]
  - Expired product administered [Unknown]
